FAERS Safety Report 9501537 (Version 1)
Quarter: 2013Q3

REPORT INFORMATION
  Report Type: Spontaneous
  Country: BR (occurrence: BR)
  Receive Date: 20130905
  Receipt Date: 20130905
  Transmission Date: 20140515
  Serious: Yes (Hospitalization, Other)
  Sender: FDA-Public Use
  Company Number: BR-ABBOTT-13P-020-1141857-00

PATIENT
  Sex: Female
  Weight: 75 kg

DRUGS (14)
  1. HUMIRA [Suspect]
     Indication: ANKYLOSING SPONDYLITIS
     Route: 058
     Dates: start: 20110501, end: 20121210
  2. PROGESTERONE [Suspect]
     Indication: PRODUCT USED FOR UNKNOWN INDICATION
     Dosage: NOT REPORTED
  3. PREDNISONE [Concomitant]
     Indication: ANKYLOSING SPONDYLITIS
     Route: 048
     Dates: start: 201205, end: 201212
  4. PREDNISONE [Concomitant]
     Indication: FIBROMYALGIA
  5. COLCHICINE [Concomitant]
     Indication: BREAST INFLAMMATION
     Route: 048
     Dates: start: 2011, end: 201212
  6. OMEPRAZOLE [Concomitant]
     Indication: GASTRIC DISORDER
     Route: 048
     Dates: start: 2010, end: 201212
  7. AZATHIOPRINE [Concomitant]
     Indication: ANKYLOSING SPONDYLITIS
     Route: 048
     Dates: start: 2010, end: 201212
  8. TOPIRAMATE [Concomitant]
     Indication: HEADACHE
     Route: 048
     Dates: start: 2009, end: 201212
  9. TOPIRAMATE [Concomitant]
     Indication: SOMNOLENCE
  10. CYMBALTA [Concomitant]
     Indication: FIBROMYALGIA
     Route: 048
     Dates: start: 2010, end: 201212
  11. ALENDRONATE SODIUM [Concomitant]
     Indication: BONE DISORDER
     Route: 048
     Dates: start: 2011, end: 201212
  12. CITONEURIN [Concomitant]
     Indication: ANAEMIA
     Dosage: FORM OF ADMINISTRATION - AMPOULE
     Dates: start: 201205, end: 201212
  13. CALCIUM [Concomitant]
     Indication: MINERAL SUPPLEMENTATION
     Route: 048
     Dates: start: 201211
  14. CHOLECALCIFEROL (DEPURA) [Concomitant]
     Indication: PRODUCT USED FOR UNKNOWN INDICATION
     Route: 048
     Dates: start: 201207

REACTIONS (1)
  - Cyst [Unknown]
